FAERS Safety Report 19208187 (Version 3)
Quarter: 2021Q3

REPORT INFORMATION
  Report Type: Report from Study
  Country: US (occurrence: US)
  Receive Date: 20210503
  Receipt Date: 20210712
  Transmission Date: 20211014
  Serious: Yes (Hospitalization)
  Sender: FDA-Public Use
  Company Number: US-EMD SERONO-9234866

PATIENT
  Age: 69 Year
  Sex: Female

DRUGS (1)
  1. REBIF [Suspect]
     Active Substance: INTERFERON BETA-1A
     Indication: MULTIPLE SCLEROSIS
     Route: 058
     Dates: start: 20090520

REACTIONS (8)
  - Headache [Recovering/Resolving]
  - Injection site nodule [Recovered/Resolved]
  - Sluggishness [Recovering/Resolving]
  - Glucose tolerance impaired [Unknown]
  - White coat hypertension [Unknown]
  - Dehydration [Unknown]
  - Injection site pain [Recovered/Resolved]
  - Vertigo [Recovered/Resolved]

NARRATIVE: CASE EVENT DATE: 2020
